FAERS Safety Report 10064652 (Version 2)
Quarter: 2014Q2

REPORT INFORMATION
  Report Type: Spontaneous
  Country: US (occurrence: US)
  Receive Date: 20140408
  Receipt Date: 20140618
  Transmission Date: 20141212
  Serious: Yes (Other)
  Sender: FDA-Public Use
  Company Number: US-NOVOPROD-405216

PATIENT
  Age: 69 Year
  Sex: Male
  Weight: 64.4 kg

DRUGS (3)
  1. LEVEMIR FLEXPEN [Suspect]
     Indication: TYPE 2 DIABETES MELLITUS
     Dosage: 35 UNITS QD AT NIGHT
     Route: 058
     Dates: start: 20121213
  2. APIDRA [Concomitant]
     Indication: TYPE 2 DIABETES MELLITUS
     Dosage: UNK
     Route: 058
  3. GLIPIZIDE [Concomitant]
     Indication: TYPE 2 DIABETES MELLITUS
     Dosage: UNK
     Route: 048

REACTIONS (1)
  - Pancreatic carcinoma metastatic [Not Recovered/Not Resolved]
